FAERS Safety Report 11836864 (Version 1)
Quarter: 2015Q4

REPORT INFORMATION
  Report Type: Spontaneous
  Country: US (occurrence: US)
  Receive Date: 20151215
  Receipt Date: 20151215
  Transmission Date: 20160305
  Serious: No
  Sender: FDA-Public Use
  Company Number: US-ASTELLAS-2015US028966

PATIENT
  Sex: Male

DRUGS (1)
  1. TARCEVA [Suspect]
     Active Substance: ERLOTINIB HYDROCHLORIDE
     Indication: LUNG ADENOCARCINOMA METASTATIC
     Route: 048

REACTIONS (8)
  - Eye infection [Unknown]
  - Pain in extremity [Unknown]
  - Dysphagia [Unknown]
  - Swelling face [Unknown]
  - Musculoskeletal pain [Unknown]
  - Mucosal inflammation [Unknown]
  - Oropharyngeal pain [Unknown]
  - Conjunctivitis [Unknown]
